FAERS Safety Report 13716763 (Version 1)
Quarter: 2017Q3

REPORT INFORMATION
  Report Type: Spontaneous
  Country: US (occurrence: US)
  Receive Date: 20170705
  Receipt Date: 20170705
  Transmission Date: 20171127
  Serious: No
  Sender: FDA-Public Use
  Company Number: US-TEVA-763691ACC

PATIENT
  Age: 80 Year
  Sex: Female

DRUGS (7)
  1. XANAX [Concomitant]
     Active Substance: ALPRAZOLAM
     Indication: INSOMNIA
     Dosage: NIGHT
  2. BABY ASPIRIN [Concomitant]
     Active Substance: ASPIRIN
  3. POTASSIUM [Concomitant]
     Active Substance: POTASSIUM
  4. BUPROPION EXTENDED RELEASE XL [Suspect]
     Active Substance: BUPROPION
     Indication: BIPOLAR DISORDER
     Dosage: DOSE STRENGTH : 100
  5. BUPROPION EXTENDED RELEASE XL [Suspect]
     Active Substance: BUPROPION
  6. MAGNESIUM [Concomitant]
     Active Substance: MAGNESIUM
  7. AMBIEN [Concomitant]
     Active Substance: ZOLPIDEM TARTRATE
     Indication: INSOMNIA
     Dosage: NIGHT

REACTIONS (21)
  - Pain [Unknown]
  - Erythema [Not Recovered/Not Resolved]
  - Mania [Unknown]
  - Psychomotor hyperactivity [Unknown]
  - Agitation [Unknown]
  - Constipation [Unknown]
  - Anxiety [Unknown]
  - Confusional state [Unknown]
  - Joint swelling [Unknown]
  - Back pain [Unknown]
  - Mental disorder [Unknown]
  - Oedema peripheral [Recovered/Resolved]
  - Adverse event [Unknown]
  - Arthralgia [Unknown]
  - Rash [Unknown]
  - Irritability [Recovered/Resolved]
  - Feeling abnormal [Recovered/Resolved]
  - Restlessness [Unknown]
  - Logorrhoea [Unknown]
  - Insomnia [Unknown]
  - Anger [Unknown]
